FAERS Safety Report 23964323 (Version 4)
Quarter: 2024Q4

REPORT INFORMATION
  Report Type: Report from Study
  Country: IE (occurrence: IE)
  Receive Date: 20240611
  Receipt Date: 20241105
  Transmission Date: 20250114
  Serious: Yes (Hospitalization)
  Sender: JOHNSON AND JOHNSON
  Company Number: IE-JNJFOC-20240614474

PATIENT
  Age: 70 Year
  Sex: Male

DRUGS (12)
  1. ZYTIGA [Suspect]
     Active Substance: ABIRATERONE ACETATE
     Indication: Prostate cancer
     Route: 048
     Dates: start: 20201227
  2. PREDNISOLONE [Concomitant]
     Active Substance: PREDNISOLONE
     Route: 050
  3. ATORVASTATIN [Concomitant]
     Active Substance: ATORVASTATIN
     Route: 050
  4. EFFEXOR [Concomitant]
     Active Substance: VENLAFAXINE HYDROCHLORIDE
     Route: 050
  5. GONADORELIN [Concomitant]
     Active Substance: GONADORELIN
     Dosage: 11.25MG PER DOSE
     Route: 050
  6. LACTULOSE [Concomitant]
     Active Substance: LACTULOSE
     Route: 050
  7. MIRABEGRON [Concomitant]
     Active Substance: MIRABEGRON
     Route: 050
  8. MOVICOL [Concomitant]
     Active Substance: POLYETHYLENE GLYCOL 3350\POTASSIUM CHLORIDE\SODIUM BICARBONATE\SODIUM CHLORIDE
     Dosage: 1N/A
     Route: 050
  9. GABAPENTIN [Concomitant]
     Active Substance: GABAPENTIN
     Route: 050
  10. DULOXETINE [Concomitant]
     Active Substance: DULOXETINE
     Route: 050
  11. TELMISARTAN [Concomitant]
     Active Substance: TELMISARTAN
     Route: 050
     Dates: start: 20221213
  12. AMLODIPINE BESYLATE\OLMESARTAN MEDOXOMIL [Concomitant]
     Active Substance: AMLODIPINE BESYLATE\OLMESARTAN MEDOXOMIL
     Dosage: 40/5 MG
     Dates: start: 202405

REACTIONS (6)
  - Cystitis radiation [Not Recovered/Not Resolved]
  - Hypertension [Not Recovered/Not Resolved]
  - Catheter placement [Unknown]
  - Bladder repair [Unknown]
  - Urinary incontinence [Not Recovered/Not Resolved]
  - Dyspepsia [Not Recovered/Not Resolved]

NARRATIVE: CASE EVENT DATE: 20240501
